FAERS Safety Report 5726394-2 (Version None)
Quarter: 2008Q2

REPORT INFORMATION
  Report Type: 
  Country: None (occurrence: None)
  Receive Date: 20080502
  Receipt Date: 20080423
  Transmission Date: 20081010
  Serious: Yes (Death)
  Sender: FDA-Public Use
  Company Number: CA-ABBOTT-08P-028-0446315-00

PATIENT
  Sex: Female
  Weight: 86 kg

DRUGS (10)
  1. HUMIRA [Suspect]
     Indication: PSORIASIS
     Route: 058
     Dates: start: 20080128, end: 20080331
  2. FOLIC ACID [Concomitant]
     Indication: ROUTINE HEALTH MAINTENANCE
     Route: 048
     Dates: start: 20071031
  3. THIAMINE HCL [Concomitant]
     Indication: ROUTINE HEALTH MAINTENANCE
     Route: 048
     Dates: start: 20070802
  4. FLUOXETINE HYDROCHLORIDE [Concomitant]
     Indication: DEPRESSION
     Route: 048
     Dates: start: 20071028
  5. CLOXACILLIN SODIUM [Concomitant]
     Indication: SKIN INFECTION
     Route: 048
     Dates: start: 20071130, end: 20071220
  6. DOVOBET OINTMENT [Concomitant]
     Indication: PSORIASIS
     Route: 062
     Dates: start: 20040101
  7. ELOCOM LOTION [Concomitant]
     Indication: PSORIASIS
     Route: 062
     Dates: start: 20071031
  8. CLOBETASOL PROPIONATE [Concomitant]
     Indication: PSORIASIS
     Route: 062
     Dates: start: 20020101
  9. DYAZIDE [Concomitant]
     Indication: OEDEMA PERIPHERAL
     Route: 048
     Dates: start: 20080207
  10. FUROSEMIDE [Concomitant]
     Indication: OEDEMA PERIPHERAL
     Route: 048
     Dates: start: 20080207

REACTIONS (1)
  - DEATH [None]
